FAERS Safety Report 12641603 (Version 1)
Quarter: 2016Q3

REPORT INFORMATION
  Report Type: Spontaneous
  Country: US (occurrence: US)
  Receive Date: 20160810
  Receipt Date: 20160810
  Transmission Date: 20161109
  Serious: Yes (Other)
  Sender: FDA-Public Use
  Company Number: US-LUNDBECK-DKLU2017504

PATIENT
  Age: 62 Year
  Sex: Male

DRUGS (1)
  1. NORTHERA [Suspect]
     Active Substance: DROXIDOPA
     Indication: PRODUCT USED FOR UNKNOWN INDICATION
     Dosage: SCHEDULE A TITRATION
     Route: 065
     Dates: start: 20160801

REACTIONS (5)
  - Fall [Unknown]
  - Nausea [Recovered/Resolved]
  - Headache [Unknown]
  - Loss of consciousness [Unknown]
  - Skin abrasion [Unknown]

NARRATIVE: CASE EVENT DATE: 20160801
